FAERS Safety Report 6073625-8 (Version None)
Quarter: 2009Q1

REPORT INFORMATION
  Report Type: 
  Country: None (occurrence: None)
  Receive Date: 20090211
  Receipt Date: 20090130
  Transmission Date: 20090719
  Serious: Yes (Hospitalization, Other)
  Sender: FDA-Public Use
  Company Number: DE-PFIZER INC-2009156839

PATIENT

DRUGS (6)
  1. LONOLOX [Suspect]
     Indication: HYPERTENSION
     Dosage: 10 MG, 2X/DAY
     Route: 048
     Dates: start: 20080101
  2. LONOLOX [Suspect]
     Dosage: 5 MG, 2X/DAY
     Route: 048
     Dates: start: 20081101
  3. TOREM [Concomitant]
     Indication: HYPERTENSION
     Dosage: 20 MG/DAY
     Route: 048
  4. DIBLOCIN [Concomitant]
     Indication: HYPERTENSION
     Dosage: 4 MG, 3X/DAY
     Route: 048
  5. EBRANTIL [Concomitant]
     Indication: HYPERTENSION
     Dosage: 90 MG, 3X/DAY
     Route: 048
  6. LISINOPRIL [Concomitant]
     Indication: HYPERTENSION
     Dosage: 20 MG, 2X/DAY
     Route: 048

REACTIONS (8)
  - ANAEMIA [None]
  - DYSPNOEA [None]
  - HYPERTENSION [None]
  - OEDEMA PERIPHERAL [None]
  - RENAL FAILURE ACUTE [None]
  - THROMBOPHLEBITIS SUPERFICIAL [None]
  - UPPER RESPIRATORY TRACT INFECTION [None]
  - WEIGHT INCREASED [None]
